FAERS Safety Report 17476489 (Version 1)
Quarter: 2020Q1

REPORT INFORMATION
  Report Type: Other
  Country: LB (occurrence: LB)
  Receive Date: 20200228
  Receipt Date: 20200228
  Transmission Date: 20200409
  Serious: Yes (Life-Threatening, Hospitalization, Other)
  Sender: FDA-Public Use
  Company Number: LB-DENTSPLY-2020SCDP000079

PATIENT
  Age: 65 Year
  Sex: Male

DRUGS (1)
  1. LIDOCAINE HCL [Suspect]
     Active Substance: LIDOCAINE HYDROCHLORIDE
     Indication: LOCAL ANAESTHESIA
     Dosage: 20 MILLILITER, TOTAL, TWENTY ML OF 2% LIDOCAINE GEL INJECTION WAS APPLIED INTRAURETHRALLY GEL FOR IN
     Route: 066

REACTIONS (5)
  - Cardiotoxicity [Recovered/Resolved]
  - Local anaesthetic systemic toxicity [Recovered/Resolved]
  - Supraventricular tachycardia [Recovered/Resolved]
  - Hypertension [Recovered/Resolved]
  - Respiratory rate increased [Recovered/Resolved]
